FAERS Safety Report 9230681 (Version 3)
Quarter: 2013Q4

REPORT INFORMATION
  Report Type: Spontaneous
  Country: US (occurrence: None)
  Receive Date: 20121031
  Receipt Date: 20131226
  Transmission Date: 20140711
  Serious: Yes (Other)
  Sender: FDA-Public Use
  Company Number: PHEH2012US016262

PATIENT
  Age: 40 Year
  Sex: Female

DRUGS (2)
  1. GILENYA (FTY)CAPSULE, 0.5MG [Suspect]
     Indication: MULTIPLE SCLEROSIS
     Route: 048
     Dates: start: 20120201
  2. PROPANOLOL (PROPANOLOL) [Concomitant]

REACTIONS (2)
  - Fatigue [None]
  - Tremor [None]
